FAERS Safety Report 8009083-3 (Version None)
Quarter: 2011Q4

REPORT INFORMATION
  Report Type: 
  Country: None (occurrence: None)
  Receive Date: 20111227
  Receipt Date: 20111219
  Transmission Date: 20120403
  Serious: No
  Sender: FDA-Public Use
  Company Number: US-PFIZER INC-2011308370

PATIENT
  Sex: Female

DRUGS (3)
  1. AZITHROMYCIN [Suspect]
     Indication: PHARYNGITIS STREPTOCOCCAL
     Dosage: 250 MG, UNK
     Dates: start: 20111121
  2. ZITHROMAX [Suspect]
     Indication: PHARYNGITIS STREPTOCOCCAL
     Dosage: UNK
  3. AZITHROMYCIN [Suspect]
     Dosage: 250 MG, UNK
     Dates: start: 20111129

REACTIONS (3)
  - DRUG INEFFECTIVE [None]
  - PYREXIA [None]
  - OROPHARYNGEAL PAIN [None]
